FAERS Safety Report 10069857 (Version 2)
Quarter: 2014Q2

REPORT INFORMATION
  Report Type: Spontaneous
  Country: US (occurrence: US)
  Receive Date: 20140410
  Receipt Date: 20140516
  Transmission Date: 20141212
  Serious: No
  Sender: FDA-Public Use
  Company Number: US-PFIZER INC-2014099835

PATIENT
  Sex: Female

DRUGS (3)
  1. LYRICA [Suspect]
     Dosage: UNK
  2. TYLENOL W/CODEINE NO. 3 [Concomitant]
     Indication: PAIN
     Dosage: UNK
  3. ADVIL [Concomitant]
     Indication: PAIN
     Dosage: UNK

REACTIONS (1)
  - Fibromyalgia [Unknown]
